FAERS Safety Report 15524192 (Version 1)
Quarter: 2018Q4

REPORT INFORMATION
  Report Type: Spontaneous
  Country: JP (occurrence: JP)
  Receive Date: 20181019
  Receipt Date: 20181019
  Transmission Date: 20190205
  Serious: Yes (Other)
  Sender: FDA-Public Use
  Company Number: JP-PFIZER INC-2018274715

PATIENT
  Age: 8 Decade
  Sex: Male

DRUGS (1)
  1. SUTENT [Suspect]
     Active Substance: SUNITINIB MALATE
     Dosage: 37.5 MG, CYCLIC (DAILY, 4 WEEKS ON 2 WEEKS OFF)
     Route: 048
     Dates: start: 201805

REACTIONS (4)
  - Dysgeusia [Unknown]
  - Hypothyroidism [Unknown]
  - Ascites [Unknown]
  - Anaemia [Unknown]

NARRATIVE: CASE EVENT DATE: 2018
